FAERS Safety Report 12622912 (Version 1)
Quarter: 2016Q3

REPORT INFORMATION
  Report Type: Spontaneous
  Country: CH (occurrence: CH)
  Receive Date: 20160804
  Receipt Date: 20160804
  Transmission Date: 20161109
  Serious: Yes (Other)
  Sender: FDA-Public Use
  Company Number: CH-BRISTOL-MYERS SQUIBB COMPANY-BMS-2015-090479

PATIENT
  Age: 53 Year
  Sex: Male

DRUGS (2)
  1. OPDIVO [Suspect]
     Active Substance: NIVOLUMAB
     Indication: ADENOCARCINOMA
  2. OPDIVO [Suspect]
     Active Substance: NIVOLUMAB
     Indication: PANCOAST^S TUMOUR
     Dosage: UNK
     Route: 065
     Dates: start: 20150623, end: 20151216

REACTIONS (4)
  - Hypothyroidism [Unknown]
  - Device related infection [Unknown]
  - Malignant neoplasm progression [Unknown]
  - Off label use [Unknown]
